FAERS Safety Report 23657159 (Version 1)
Quarter: 2024Q1

REPORT INFORMATION
  Report Type: Report from Study
  Country: BR (occurrence: BR)
  Receive Date: 20240321
  Receipt Date: 20240321
  Transmission Date: 20240409
  Serious: No
  Sender: FDA-Public Use
  Company Number: BR-UCBSA-2024012980

PATIENT
  Sex: Female

DRUGS (10)
  1. ROTIGOTINE [Suspect]
     Active Substance: ROTIGOTINE
     Indication: Parkinson^s disease
     Dosage: 4 MG
     Route: 062
  2. ROTIGOTINE [Suspect]
     Active Substance: ROTIGOTINE
     Dosage: 6MG-1 PATCH EVERY 24 HOURS
     Route: 062
     Dates: start: 202307
  3. BENSERAZIDE\LEVODOPA [Concomitant]
     Active Substance: BENSERAZIDE\LEVODOPA
     Indication: Parkinson^s disease
     Dosage: 100/125 MG: USES 1 TABLET 6 TIMES PER DAY
     Route: 048
     Dates: start: 2013
  4. BENSERAZIDE\LEVODOPA [Concomitant]
     Active Substance: BENSERAZIDE\LEVODOPA
     Dosage: DOSAGE WAS INCREASED OVER TIME
  5. EXELON [Concomitant]
     Active Substance: RIVASTIGMINE TARTRATE
     Indication: Memory impairment
     Dosage: UNK
     Dates: start: 2018
  6. EXELON [Concomitant]
     Active Substance: RIVASTIGMINE TARTRATE
     Dosage: DOSAGE WAS INCREASED OVER TIME
  7. VENLAFAXINE [Concomitant]
     Active Substance: VENLAFAXINE HYDROCHLORIDE
     Indication: Depression
     Dosage: 1 TABLET PER DAY
     Dates: start: 2013
  8. VENLAFAXINE [Concomitant]
     Active Substance: VENLAFAXINE HYDROCHLORIDE
     Indication: Parkinson^s disease
  9. MEMANTINE HYDROCHLORIDE [Concomitant]
     Active Substance: MEMANTINE HYDROCHLORIDE
     Indication: Memory impairment
     Dosage: 20 MG 1 TABLET PER DAY.
     Dates: start: 202303
  10. CALCIUM [Concomitant]
     Active Substance: CALCIUM
     Indication: Supplementation therapy

REACTIONS (7)
  - Mobility decreased [Recovered/Resolved]
  - Gait disturbance [Recovered/Resolved]
  - Movement disorder [Recovered/Resolved]
  - Balance disorder [Recovered/Resolved]
  - Product adhesion issue [Unknown]
  - Product availability issue [Unknown]
  - Incorrect dose administered [Unknown]
